FAERS Safety Report 8540262-2 (Version None)
Quarter: 2012Q3

REPORT INFORMATION
  Report Type: 
  Country: None (occurrence: None)
  Receive Date: 20120726
  Receipt Date: 20120719
  Transmission Date: 20120928
  Serious: Yes (Other)
  Sender: FDA-Public Use
  Company Number: US-PFIZER INC-2012176155

PATIENT

DRUGS (1)
  1. VIAGRA [Suspect]
     Dosage: 100 MG, UNK

REACTIONS (2)
  - VISUAL ACUITY REDUCED [None]
  - VISION BLURRED [None]
